FAERS Safety Report 8450358-1 (Version None)
Quarter: 2012Q2

REPORT INFORMATION
  Report Type: 
  Country: None (occurrence: None)
  Receive Date: 20120620
  Receipt Date: 20120618
  Transmission Date: 20120825
  Serious: Yes (Hospitalization)
  Sender: FDA-Public Use
  Company Number: US-PFIZER INC-2012147014

PATIENT
  Sex: Male
  Weight: 77.098 kg

DRUGS (4)
  1. DETROL LA [Suspect]
     Indication: URINARY INCONTINENCE
     Dosage: UNK
     Route: 048
     Dates: start: 20100101
  2. CELEBREX [Suspect]
     Indication: JOINT STIFFNESS
     Dosage: UNK
     Route: 048
  3. CELEBREX [Suspect]
     Indication: RHEUMATOID ARTHRITIS
  4. VIAGRA [Suspect]
     Indication: ERECTILE DYSFUNCTION
     Dosage: UNK
     Route: 048
     Dates: start: 20090101

REACTIONS (1)
  - TONSILLAR DISORDER [None]
